FAERS Safety Report 20981145 (Version 14)
Quarter: 2025Q4

REPORT INFORMATION
  Report Type: Spontaneous
  Country: IN (occurrence: IN)
  Receive Date: 20220620
  Receipt Date: 20251020
  Transmission Date: 20260117
  Serious: Yes (Other)
  Sender: PFIZER
  Company Number: IN-PFIZER INC-2021445341

PATIENT
  Age: 78 Year
  Sex: Female

DRUGS (21)
  1. PALBOCICLIB [Suspect]
     Active Substance: PALBOCICLIB
     Indication: Breast cancer metastatic
     Dosage: 125 MG, CYCLIC (125 MG/DAY, 21/28 DAYS)
     Route: 048
     Dates: start: 2018
  2. PALBOCICLIB [Suspect]
     Active Substance: PALBOCICLIB
     Dosage: 125 MG, CYCLIC (125 MG/DAY, 21/28 DAYS)
     Route: 048
     Dates: start: 20191116, end: 20210925
  3. PALBOCICLIB [Suspect]
     Active Substance: PALBOCICLIB
     Dosage: 100 MG
     Route: 048
     Dates: start: 2021
  4. PALBOCICLIB [Suspect]
     Active Substance: PALBOCICLIB
     Dosage: 100 MG, CYCLIC (DAILY X 21 DAYS IN A MONTH)
     Route: 048
  5. PALBOCICLIB [Suspect]
     Active Substance: PALBOCICLIB
     Dosage: 100 MG, CYCLIC (100 MG 1 DAILY FOR 21 DAYS/30 DAYS X 3 MONTHS)
     Route: 048
  6. PALBOCICLIB [Suspect]
     Active Substance: PALBOCICLIB
     Dosage: 125 MG, CYCLIC (125 MG OD FOR 21 DAYS/ 30 DAYS FOR 3 MONTHS)
     Route: 048
  7. PALBOCICLIB [Suspect]
     Active Substance: PALBOCICLIB
     Dosage: 100 MG, 1X/DAY
  8. PALBOCICLIB [Suspect]
     Active Substance: PALBOCICLIB
     Dosage: 75 MG, CYCLIC (75MG ONCE DAILY FOR 21 DAYS/ 30 DAYS FOR 3 MONTHS)
     Dates: start: 2025
  9. PALBOCICLIB [Suspect]
     Active Substance: PALBOCICLIB
     Dosage: 100 MG, 1X/DAY
     Route: 048
  10. MEGASTY [Concomitant]
     Dosage: 160 MG, 1X/DAY
  11. FULVESTRANT [Concomitant]
     Active Substance: FULVESTRANT
     Dosage: 500 MG, MONTHLY (ONCE A MONTH, FOR 3 MONTHS)
     Route: 030
  12. NEUKINE [Concomitant]
     Indication: Leukopenia
     Dosage: 300 MG
     Route: 058
  13. LYCOGEM FORTE [Concomitant]
     Dosage: 1 DAILY FOR 3 MONTHS
  14. FOLVITE [Concomitant]
     Active Substance: FOLIC ACID
     Dosage: UNK
     Dates: start: 201912
  15. FOLVITE [Concomitant]
     Active Substance: FOLIC ACID
     Dosage: 500 MG
  16. LETROZOLE [Concomitant]
     Active Substance: LETROZOLE
     Dosage: UNK
  17. CALCIUM\CHOLECALCIFEROL [Concomitant]
     Active Substance: CALCIUM\CHOLECALCIFEROL
     Dosage: 1 DF, DAILY
  18. PREDNISOLONE [Concomitant]
     Active Substance: PREDNISOLONE
     Dosage: UNK
     Dates: start: 2025
  19. PREDNISOLONE [Concomitant]
     Active Substance: PREDNISOLONE
     Dosage: 5 MG, 1X/DAY (1-0-0 X 3MONTH)
     Dates: start: 2025
  20. CHOLECALCIFEROL [Concomitant]
     Active Substance: CHOLECALCIFEROL
     Indication: Supplementation therapy
     Dosage: UNK
  21. VITAMIN B12 [Concomitant]
     Active Substance: CYANOCOBALAMIN
     Indication: Supplementation therapy
     Dosage: UNK

REACTIONS (19)
  - Biliary dilatation [Unknown]
  - Bile duct stenosis [Unknown]
  - Chest discomfort [Unknown]
  - White blood cell count decreased [Recovering/Resolving]
  - Stent placement [Unknown]
  - Metastases to lymph nodes [Unknown]
  - Metastases to peripheral vascular system [Unknown]
  - Metastases to skin [Unknown]
  - Cytopenia [Unknown]
  - Phlebolith [Unknown]
  - Exostosis [Unknown]
  - Spinal osteoarthritis [Unknown]
  - Blood creatinine increased [Unknown]
  - Decreased appetite [Unknown]
  - Platelet count decreased [Unknown]
  - Haemoglobin decreased [Unknown]
  - Asthenia [Recovering/Resolving]
  - Mood swings [Recovering/Resolving]
  - Blood creatinine decreased [Unknown]

NARRATIVE: CASE EVENT DATE: 20210301
